FAERS Safety Report 10610644 (Version 2)
Quarter: 2014Q4

REPORT INFORMATION
  Report Type: Spontaneous
  Country: US (occurrence: US)
  Receive Date: 20141126
  Receipt Date: 20141126
  Transmission Date: 20150529
  Serious: Yes (Hospitalization)
  Sender: FDA-Public Use
  Company Number: US-MALLINCKRODT-T201403665

PATIENT
  Age: 40 Year
  Sex: Female

DRUGS (15)
  1. CALCIUM [Concomitant]
     Active Substance: CALCIUM
     Dosage: 1000 MG DAILY
     Route: 048
  2. MORPHINE SULFATE. [Suspect]
     Active Substance: MORPHINE SULFATE
     Indication: PAIN
     Dosage: 25 MG/ML, 4.508 MG/DAY
     Route: 037
     Dates: start: 20140814
  3. ZOLOFT [Concomitant]
     Active Substance: SERTRALINE HYDROCHLORIDE
     Indication: MAJOR DEPRESSION
     Dosage: 100 MG, 200 MG DAILY
     Route: 048
  4. NORCO [Concomitant]
     Active Substance: ACETAMINOPHEN\HYDROCODONE BITARTRATE
     Indication: PAIN
     Dosage: 10/325 MG, ONE TABLET Q 6 HOURS AS NEEDED
  5. GABLOFEN [Suspect]
     Active Substance: BACLOFEN
     Indication: PAIN
     Dosage: 360.6 MG/DAY
     Route: 037
     Dates: start: 20140814
  6. MEDROL [Concomitant]
     Active Substance: METHYLPREDNISOLONE
     Route: 048
  7. VALIUM [Concomitant]
     Active Substance: DIAZEPAM
     Indication: ANXIETY
     Dosage: 5 MG, 10 MG QID PRN
  8. LYRICA [Concomitant]
     Active Substance: PREGABALIN
     Dosage: 200 MG, BID
     Route: 048
  9. IBUPROFEN. [Concomitant]
     Active Substance: IBUPROFEN
     Dosage: UNK
  10. ADDERALL [Concomitant]
     Active Substance: AMPHETAMINE ASPARTATE\AMPHETAMINE SULFATE\DEXTROAMPHETAMINE SACCHARATE\DEXTROAMPHETAMINE SULFATE
     Dosage: 30 MG, BID, PRN
     Route: 048
  11. LORAZEPAM. [Concomitant]
     Active Substance: LORAZEPAM
     Dosage: 1 MG, TID, PRN
     Route: 048
  12. VITAMIN D [Concomitant]
     Active Substance: CHOLECALCIFEROL
     Dosage: 5000 UNITS DAILY
     Route: 048
  13. BACLOFEN. [Concomitant]
     Active Substance: BACLOFEN
     Dosage: 10 MG, BY MOUTH TID
  14. ZANAFLEX [Concomitant]
     Active Substance: TIZANIDINE HYDROCHLORIDE
     Dosage: 4 MG, QD
     Route: 048
  15. IMITREX [Concomitant]
     Active Substance: SUMATRIPTAN\SUMATRIPTAN SUCCINATE
     Indication: MIGRAINE
     Dosage: 25 MG ONCE AS NEEDED, MAY REPEAT DOSE IN 2 HOURS
     Route: 048

REACTIONS (11)
  - Device inversion [Recovered/Resolved]
  - Drug withdrawal syndrome [Recovered/Resolved]
  - Incision site pain [Unknown]
  - Phonophobia [Not Recovered/Not Resolved]
  - Device dislocation [Recovered/Resolved]
  - Photophobia [Not Recovered/Not Resolved]
  - Headache [Not Recovered/Not Resolved]
  - Cerebrospinal fluid leakage [Unknown]
  - Vomiting [Not Recovered/Not Resolved]
  - Arthralgia [Unknown]
  - Nausea [Not Recovered/Not Resolved]

NARRATIVE: CASE EVENT DATE: 20140904
